FAERS Safety Report 5025079-8 (Version None)
Quarter: 2006Q2

REPORT INFORMATION
  Report Type: 
  Country: None (occurrence: None)
  Receive Date: 20060426
  Receipt Date: 20060123
  Transmission Date: 20061013
  Serious: Yes (Other)
  Sender: FDA-Public Use
  Company Number: 2006011576

PATIENT
  Age: 74 Year
  Sex: Male
  Weight: 107.9561 kg

DRUGS (6)
  1. LYRICA [Suspect]
     Indication: DIABETES MELLITUS
     Dosage: 75 MG (75 MG,1 IN 1 D),ORAL
     Route: 048
     Dates: start: 20051201, end: 20060123
  2. CYMBALTA [Concomitant]
  3. AMARYL [Concomitant]
  4. ALTACE [Concomitant]
  5. PRAVACHOL [Concomitant]
  6. MOBIC [Concomitant]

REACTIONS (2)
  - SLEEP TALKING [None]
  - SOMNOLENCE [None]
